FAERS Safety Report 16033722 (Version 1)
Quarter: 2019Q1

REPORT INFORMATION
  Report Type: Report from Study
  Country: TR (occurrence: TR)
  Receive Date: 20190305
  Receipt Date: 20190305
  Transmission Date: 20190418
  Serious: Yes (Other)
  Sender: FDA-Public Use
  Company Number: TR-TEVA-2019-TR-1020638

PATIENT
  Sex: Female

DRUGS (3)
  1. SERETIDE [Concomitant]
     Active Substance: FLUTICASONE PROPIONATE\SALMETEROL XINAFOATE
     Dosage: UNKNOWN FORM STRENGTH
     Route: 065
  2. LIORESAL [Concomitant]
     Active Substance: BACLOFEN
     Dosage: UNKNOWN FORM STRENGTH
     Route: 048
  3. COPAXONE [Suspect]
     Active Substance: GLATIRAMER ACETATE
     Indication: MULTIPLE SCLEROSIS
     Dosage: 20 MILLIGRAM/MILLILITERS DAILY;
     Route: 058
     Dates: start: 20140815, end: 20190201

REACTIONS (9)
  - Hypotension [Recovered/Resolved]
  - Generalised erythema [Recovered/Resolved]
  - Loss of consciousness [Recovered/Resolved]
  - Vomiting projectile [Recovered/Resolved]
  - Nausea [Recovered/Resolved]
  - Diarrhoea [Recovered/Resolved]
  - Throat irritation [Unknown]
  - Dyspnoea [Unknown]
  - Immediate post-injection reaction [Recovered/Resolved]
